FAERS Safety Report 17440610 (Version 1)
Quarter: 2020Q1

REPORT INFORMATION
  Report Type: Spontaneous
  Country: IT (occurrence: IT)
  Receive Date: 20200220
  Receipt Date: 20200220
  Transmission Date: 20200409
  Serious: Yes (Death)
  Sender: FDA-Public Use
  Company Number: IT-SCIEGEN PHARMACEUTICALS INC-2020SCILIT00045

PATIENT
  Age: 58 Year
  Sex: Male

DRUGS (3)
  1. OPIATES [Suspect]
     Active Substance: UNSPECIFIED INGREDIENT
  2. QUETIAPINE. [Suspect]
     Active Substance: QUETIAPINE
  3. VENLAFAXINE [Suspect]
     Active Substance: VENLAFAXINE HYDROCHLORIDE

REACTIONS (1)
  - Toxicity to various agents [Fatal]
